FAERS Safety Report 21857044 (Version 5)
Quarter: 2024Q1

REPORT INFORMATION
  Report Type: Report from Study
  Country: US (occurrence: US)
  Receive Date: 20230113
  Receipt Date: 20240103
  Transmission Date: 20240410
  Serious: Yes (Hospitalization, Other)
  Sender: FDA-Public Use
  Company Number: US-ABBVIE-4236523

PATIENT
  Age: 56 Year
  Sex: Female
  Weight: 61.234 kg

DRUGS (5)
  1. HUMIRA [Suspect]
     Active Substance: ADALIMUMAB
     Indication: Rheumatoid arthritis
     Dosage: CITRATE FREE, FORM STRENGTH 40 MG
     Route: 058
     Dates: start: 20221126
  2. HUMIRA [Suspect]
     Active Substance: ADALIMUMAB
     Dosage: CITRATE FREE, FORM STRENGTH 40 MG
     Route: 058
  3. HUMIRA [Suspect]
     Active Substance: ADALIMUMAB
     Dosage: CITRATE FREE, FORM STRENGTH 40 MG
     Route: 058
  4. FASENRA [Suspect]
     Active Substance: BENRALIZUMAB
     Indication: Product used for unknown indication
     Route: 065
  5. NUCALA [Suspect]
     Active Substance: MEPOLIZUMAB
     Indication: Product used for unknown indication
     Route: 065

REACTIONS (23)
  - Acute myocardial infarction [Unknown]
  - Respiratory failure [Not Recovered/Not Resolved]
  - Asthma [Unknown]
  - Respiratory disorder [Unknown]
  - Headache [Not Recovered/Not Resolved]
  - Macular degeneration [Unknown]
  - Pain [Unknown]
  - Influenza [Unknown]
  - Asthma [Unknown]
  - Lung disorder [Unknown]
  - Hypereosinophilic syndrome [Unknown]
  - Myocarditis [Unknown]
  - Adverse reaction [Unknown]
  - Dizziness [Unknown]
  - Back pain [Unknown]
  - Pyrexia [Unknown]
  - Arthralgia [Unknown]
  - Paraesthesia [Unknown]
  - Paraesthesia oral [Unknown]
  - Eosinophilic granulomatosis with polyangiitis [Unknown]
  - Oral pruritus [Unknown]
  - Respiratory tract infection [Unknown]
  - Eosinophilia [Unknown]

NARRATIVE: CASE EVENT DATE: 20221126
